FAERS Safety Report 7247099-5 (Version None)
Quarter: 2011Q1

REPORT INFORMATION
  Report Type: 
  Country: None (occurrence: None)
  Receive Date: 20110127
  Receipt Date: 20100420
  Transmission Date: 20110831
  Serious: No
  Sender: FDA-Public Use
  Company Number: US-BAUSCH-2010BL002104

PATIENT
  Age: 49 Year
  Sex: Male

DRUGS (4)
  1. FEXOFENADINE HCL [Concomitant]
  2. ALAWAY [Suspect]
     Indication: EYE PRURITUS
     Route: 047
     Dates: start: 20100413, end: 20100420
  3. ALAWAY [Suspect]
     Indication: EYE IRRITATION
     Route: 047
     Dates: start: 20100413, end: 20100420
  4. ZADITOR [Concomitant]

REACTIONS (2)
  - EYE IRRITATION [None]
  - CONDITION AGGRAVATED [None]
